FAERS Safety Report 7872837-8 (Version None)
Quarter: 2011Q4

REPORT INFORMATION
  Report Type: 
  Country: None (occurrence: None)
  Receive Date: 20111030
  Receipt Date: 20110425
  Transmission Date: 20120403
  Serious: No
  Sender: FDA-Public Use
  Company Number: US-AMGEN-USASP2011021598

PATIENT
  Age: 51 Year
  Sex: Female

DRUGS (1)
  1. ENBREL [Suspect]
     Indication: PSORIASIS
     Dosage: 50 MG, 2 TIMES/WK
     Dates: start: 20110122, end: 20110417

REACTIONS (8)
  - HEADACHE [None]
  - ANXIETY [None]
  - ABNORMAL DREAMS [None]
  - PAIN [None]
  - NASAL CONGESTION [None]
  - DIARRHOEA [None]
  - INFECTION [None]
  - ABDOMINAL PAIN UPPER [None]
